FAERS Safety Report 21033141 (Version 2)
Quarter: 2022Q3

REPORT INFORMATION
  Report Type: Spontaneous
  Country: US (occurrence: US)
  Receive Date: 20220701
  Receipt Date: 20220714
  Transmission Date: 20221026
  Serious: No
  Sender: FDA-Public Use
  Company Number: US-AMGEN-USASP2022107330

PATIENT
  Age: 56 Year
  Sex: Female
  Weight: 82.086 kg

DRUGS (2)
  1. REPATHA [Suspect]
     Active Substance: EVOLOCUMAB
     Indication: Blood cholesterol increased
     Dosage: UNK UNK, Q2WK
     Route: 065
     Dates: start: 20220602
  2. SYNTHROID [Concomitant]
     Active Substance: LEVOTHYROXINE SODIUM
     Indication: Hypothyroidism
     Dosage: 0.025 MICROGRAM
     Route: 065

REACTIONS (2)
  - Injection site bruising [Unknown]
  - Atrial flutter [Unknown]

NARRATIVE: CASE EVENT DATE: 20220601
